FAERS Safety Report 6073624-6 (Version None)
Quarter: 2009Q1

REPORT INFORMATION
  Report Type: 
  Country: None (occurrence: None)
  Receive Date: 20090211
  Receipt Date: 20090130
  Transmission Date: 20090719
  Serious: Yes (Other)
  Sender: FDA-Public Use
  Company Number: US-PFIZER INC-2009164081

PATIENT
  Sex: Male
  Weight: 96.145 kg

DRUGS (6)
  1. CHANTIX [Suspect]
     Indication: SMOKING CESSATION THERAPY
     Dosage: 0.5 MG, 1X/DAY
     Route: 048
     Dates: start: 20090118
  2. WELLBUTRIN [Concomitant]
     Dosage: UNK
  3. BACLOFEN [Concomitant]
     Dosage: UNK
  4. NORCO [Concomitant]
     Indication: BACK PAIN
     Dosage: UNK
  5. KLONOPIN [Concomitant]
     Dosage: UNK
  6. AMBIEN [Concomitant]
     Indication: SLEEP DISORDER
     Dosage: UNK

REACTIONS (1)
  - OBSESSIVE-COMPULSIVE DISORDER [None]
